FAERS Safety Report 7443022-9 (Version None)
Quarter: 2011Q2

REPORT INFORMATION
  Report Type: 
  Country: None (occurrence: None)
  Receive Date: 20110428
  Receipt Date: 20110422
  Transmission Date: 20111010
  Serious: Yes (Hospitalization)
  Sender: FDA-Public Use
  Company Number: JP-CEPHALON-2011001042

PATIENT
  Age: 54 Year
  Sex: Female

DRUGS (2)
  1. ENTECAVIR [Concomitant]
  2. BENDAMUSTINE HCL [Suspect]
     Indication: B-CELL LYMPHOMA
     Route: 042
     Dates: start: 20110208

REACTIONS (2)
  - MALAISE [None]
  - HEPATITIS B [None]
